FAERS Safety Report 8843817 (Version 5)
Quarter: 2014Q4

REPORT INFORMATION
  Report Type: Spontaneous
  Country: US (occurrence: US)
  Receive Date: 20121016
  Receipt Date: 20141029
  Transmission Date: 20150529
  Serious: Yes (Hospitalization, Disabling, Other)
  Sender: FDA-Public Use
  Company Number: US-009507513-1210USA004475

PATIENT
  Sex: Female
  Weight: 47.35 kg

DRUGS (5)
  1. FOSAMAX [Suspect]
     Active Substance: ALENDRONATE SODIUM
     Indication: OSTEOPOROSIS
     Dosage: 10 MG, QD
     Route: 048
     Dates: start: 19970129
  2. ALENDRONATE SODIUM. [Suspect]
     Active Substance: ALENDRONATE SODIUM
     Indication: OSTEOPOROSIS
     Dosage: 70 MG, QW
     Dates: start: 20080917, end: 20100819
  3. FOSAMAX [Suspect]
     Active Substance: ALENDRONATE SODIUM
     Indication: OSTEOPOROSIS
     Route: 048
  4. METFORMIN [Concomitant]
     Active Substance: METFORMIN HYDROCHLORIDE
     Indication: TYPE 2 DIABETES MELLITUS
     Dosage: 1000 MG, BID
     Dates: start: 2003
  5. FOSAMAX [Suspect]
     Active Substance: ALENDRONATE SODIUM
     Indication: OSTEOPENIA
     Dosage: 70 MG, QW
     Route: 048
     Dates: start: 20041207

REACTIONS (17)
  - Tooth extraction [Unknown]
  - Platelet count decreased [Unknown]
  - Hernia repair [Unknown]
  - Confusional state [Recovered/Resolved]
  - Asthenia [Unknown]
  - Intramedullary rod insertion [Unknown]
  - Neuritis [Unknown]
  - Sciatica [Unknown]
  - Peripheral vascular disorder [Unknown]
  - Sinus tachycardia [Recovered/Resolved]
  - Underweight [Unknown]
  - Haematoma [Unknown]
  - Osteoarthritis [Unknown]
  - Constipation [Unknown]
  - Femur fracture [Not Recovered/Not Resolved]
  - Low turnover osteopathy [Not Recovered/Not Resolved]
  - Anaemia [Not Recovered/Not Resolved]

NARRATIVE: CASE EVENT DATE: 20070709
